FAERS Safety Report 19482418 (Version 1)
Quarter: 2021Q3

REPORT INFORMATION
  Report Type: Spontaneous
  Country: JP (occurrence: JP)
  Receive Date: 20210701
  Receipt Date: 20210701
  Transmission Date: 20211014
  Serious: Yes (Hospitalization)
  Sender: FDA-Public Use
  Company Number: JP-MYLANLABS-2021M1038325

PATIENT
  Age: 71 Year
  Sex: Male

DRUGS (2)
  1. PREDNISOLONE. [Suspect]
     Active Substance: PREDNISOLONE
     Indication: RHEUMATOID ARTHRITIS
     Route: 048
  2. METHOTREXATE. [Suspect]
     Active Substance: METHOTREXATE
     Indication: RHEUMATOID ARTHRITIS
     Dosage: 16 MILLIGRAM, QW, FOR THE PAST SIX YEARS
     Route: 065

REACTIONS (2)
  - Cutaneous T-cell lymphoma [Recovered/Resolved]
  - Lymphoproliferative disorder [Recovered/Resolved]
